FAERS Safety Report 12937110 (Version 1)
Quarter: 2016Q4

REPORT INFORMATION
  Report Type: Spontaneous
  Country: HR (occurrence: HR)
  Receive Date: 20161114
  Receipt Date: 20161114
  Transmission Date: 20170207
  Serious: Yes (Other)
  Sender: FDA-Public Use
  Company Number: HR-TEVA-710349ACC

PATIENT
  Age: 50 Year
  Sex: Female
  Weight: 50 kg

DRUGS (1)
  1. MELARTH [Suspect]
     Active Substance: MELOXICAM
     Dosage: UNKNOWN
     Route: 048
     Dates: start: 2016

REACTIONS (2)
  - Choking [Unknown]
  - Pruritus [Unknown]

NARRATIVE: CASE EVENT DATE: 20160922
